FAERS Safety Report 6212854-7 (Version None)
Quarter: 2009Q2

REPORT INFORMATION
  Report Type: 
  Country: None (occurrence: None)
  Receive Date: 20090603
  Receipt Date: 20090527
  Transmission Date: 20091009
  Serious: Yes (Hospitalization)
  Sender: FDA-Public Use
  Company Number: DE-WYE-G03754609

PATIENT
  Age: 61 Year
  Sex: Female
  Weight: 64 kg

DRUGS (22)
  1. RAPAMUNE [Suspect]
     Indication: PROPHYLAXIS AGAINST TRANSPLANT REJECTION
     Route: 048
     Dates: start: 20090103, end: 20090120
  2. RAPAMUNE [Suspect]
     Route: 048
     Dates: start: 20090121, end: 20090309
  3. RAPAMUNE [Suspect]
     Route: 048
     Dates: start: 20090326
  4. SANDIMMUNE [Suspect]
     Indication: PROPHYLAXIS AGAINST TRANSPLANT REJECTION
     Route: 048
     Dates: start: 19990101, end: 20081221
  5. SANDIMMUNE [Suspect]
     Route: 048
     Dates: start: 20081222, end: 20090309
  6. ALLOPURINOL [Concomitant]
     Indication: HYPERURICAEMIA
     Route: 048
     Dates: start: 20080101, end: 20090309
  7. BISOPROLOL [Concomitant]
     Indication: HYPERTENSION
     Route: 048
     Dates: start: 19990101
  8. CALCIMAGON [Concomitant]
     Indication: CALCIUM DEFICIENCY
     Route: 048
     Dates: start: 20081001
  9. CYNT [Concomitant]
     Indication: HYPERTENSION
     Dosage: 1-2 TABLETS TWO TIMES PER DAY
     Route: 048
     Dates: start: 20050101
  10. DELIX [Concomitant]
     Indication: HYPERTENSION
     Route: 048
     Dates: start: 19990101
  11. DURAGESIC-100 [Concomitant]
     Indication: RESTLESS LEGS SYNDROME
     Dosage: 25?G/H
     Route: 062
     Dates: start: 20050101
  12. EBRANTIL [Concomitant]
     Indication: HYPERTENSION
     Route: 048
     Dates: start: 20081001
  13. NORVASC [Concomitant]
     Indication: HYPERTENSION
     Route: 048
     Dates: start: 20081001
  14. PANTOZOL [Concomitant]
     Indication: PROPHYLAXIS AGAINST GASTROINTESTINAL ULCER
     Route: 048
     Dates: start: 19990101
  15. TILIDINE [Concomitant]
     Indication: RESTLESS LEGS SYNDROME
     Route: 048
     Dates: start: 20050101
  16. NALOXONE [Concomitant]
     Indication: RESTLESS LEGS SYNDROME
     Route: 048
     Dates: start: 20050101
  17. TORSEMIDE [Concomitant]
     Indication: HYPERTENSION
     Route: 048
     Dates: start: 20081001, end: 20090309
  18. URSODIOL [Concomitant]
     Indication: HEPATIC FAILURE
     Route: 048
     Dates: start: 19990101
  19. ZOPICLONE [Concomitant]
     Indication: SLEEP DISORDER
     Dosage: WHEN REQUIRED
     Route: 048
     Dates: start: 20050101
  20. CELLCEPT [Suspect]
     Indication: PROPHYLAXIS AGAINST TRANSPLANT REJECTION
     Route: 048
     Dates: start: 19990101, end: 20081221
  21. CELLCEPT [Suspect]
     Route: 048
     Dates: start: 20081222, end: 20090320
  22. CELLCEPT [Suspect]
     Route: 048
     Dates: start: 20090321

REACTIONS (3)
  - CONDITION AGGRAVATED [None]
  - PNEUMOCOCCAL SEPSIS [None]
  - RENAL FAILURE [None]
